FAERS Safety Report 9463092 (Version 3)
Quarter: 2013Q4

REPORT INFORMATION
  Report Type: Spontaneous
  Country: US (occurrence: US)
  Receive Date: 20130816
  Receipt Date: 20131205
  Transmission Date: 20140711
  Serious: Yes (Death, Hospitalization)
  Sender: FDA-Public Use
  Company Number: US-NAPPMUNDI-USA-2013-0105267

PATIENT
  Age: 32 Year
  Sex: Female
  Weight: 67.12 kg

DRUGS (16)
  1. DILAUDID TABLET [Suspect]
     Indication: ABDOMINAL PAIN
     Dosage: 2 TO 4 MG (1 IN 2 HR)
     Route: 048
  2. DILAUDID TABLET [Suspect]
     Indication: HEREDITARY ANGIOEDEMA
  3. DILAUDID INJECTION [Suspect]
     Indication: ABDOMINAL PAIN
     Dosage: UNKNOWN
     Route: 042
  4. DILAUDID INJECTION [Suspect]
     Indication: HEREDITARY ANGIOEDEMA
  5. CINRYZE [Suspect]
     Indication: PROPHYLAXIS
     Dosage: 1000 UNIT , 2 IN 1 WK
     Route: 042
     Dates: start: 201303
  6. ACTIQ [Suspect]
     Indication: PAIN
     Dosage: 600 MCG, 3 IN 1 D
     Route: 048
  7. ACTIQ [Suspect]
     Indication: ABDOMINAL PAIN
     Dosage: 600 MCG (1 IN 1 D)
     Route: 048
  8. ACTIQ [Suspect]
     Indication: PAIN MANAGEMENT
  9. BENADRYL /00000402/ [Suspect]
     Indication: ABDOMINAL PAIN
     Dosage: 50 MG, PRN
     Route: 048
  10. PHENERGAN /00033001/ [Suspect]
     Indication: INFUSION
     Dosage: 25 MG, PRN
     Route: 048
  11. COLACE [Concomitant]
     Indication: CONSTIPATION
     Dosage: UNK, AS NEEDED
  12. KLONOPIN [Concomitant]
     Indication: SLEEP DISORDER
     Dosage: 1 MG, PRN
     Route: 048
  13. SYNTHROID [Concomitant]
     Indication: HYPOTHYROIDISM
     Dosage: 50 MCG, 1 IN 1 D
  14. FIRAZYR [Concomitant]
     Indication: HEREDITARY ANGIOEDEMA
     Dosage: 30 MG, PRN
     Route: 042
  15. AMBIEN [Concomitant]
     Indication: SLEEP DISORDER
     Dosage: 10 MG, PRN
     Route: 048
  16. BERINERT [Concomitant]
     Indication: HEREDITARY ANGIOEDEMA
     Dosage: 1500 UNIT, PRN
     Route: 042

REACTIONS (3)
  - Intentional overdose [Fatal]
  - Tooth abscess [Recovered/Resolved]
  - Hereditary angioedema [Recovered/Resolved]
